FAERS Safety Report 24557968 (Version 2)
Quarter: 2024Q4

REPORT INFORMATION
  Report Type: Spontaneous
  Country: US (occurrence: US)
  Receive Date: 20241028
  Receipt Date: 20241030
  Transmission Date: 20250115
  Serious: Yes (Other)
  Sender: RANBAXY
  Company Number: US-SUN PHARMACEUTICAL INDUSTRIES LTD-2024R1-475706

PATIENT
  Age: 5 Year
  Sex: Female

DRUGS (3)
  1. PREDNISONE [Suspect]
     Active Substance: PREDNISONE
     Indication: Autoimmune lymphoproliferative syndrome
     Dosage: UNK
     Route: 065
  2. RAPAMYCIN [Suspect]
     Active Substance: SIROLIMUS
     Indication: Autoimmune lymphoproliferative syndrome
     Dosage: 2 MILLIGRAM, DAILY
     Route: 048
  3. RAPAMYCIN [Suspect]
     Active Substance: SIROLIMUS
     Dosage: 5 MILLIGRAM, DAILY
     Route: 048

REACTIONS (1)
  - Uveitis [Unknown]
